FAERS Safety Report 18605053 (Version 1)
Quarter: 2020Q4

REPORT INFORMATION
  Report Type: Spontaneous
  Country: US (occurrence: US)
  Receive Date: 20201211
  Receipt Date: 20201211
  Transmission Date: 20210114
  Serious: Yes (Hospitalization)
  Sender: FDA-Public Use
  Company Number: None

PATIENT
  Age: 65 Year
  Sex: Male
  Weight: 123 kg

DRUGS (4)
  1. BAMLANIVIMAB. [Suspect]
     Active Substance: BAMLANIVIMAB
     Indication: COVID-19
     Dosage: ?          OTHER FREQUENCY:ONCE;?
     Route: 041
  2. ONDANSETRON [Concomitant]
     Active Substance: ONDANSETRON
     Dates: start: 20201210, end: 20201210
  3. 0.9% NACL 1000 ML BOLUS [Concomitant]
     Dates: start: 20201210, end: 20201210
  4. ACETAMINOPHEN. [Concomitant]
     Active Substance: ACETAMINOPHEN
     Dates: start: 20201210, end: 20201210

REACTIONS (2)
  - Infusion related reaction [None]
  - Chest pain [None]

NARRATIVE: CASE EVENT DATE: 20201210
